FAERS Safety Report 6693004-X (Version None)
Quarter: 2010Q2

REPORT INFORMATION
  Report Type: 
  Country: None (occurrence: None)
  Receive Date: 20100420
  Receipt Date: 20100402
  Transmission Date: 20101027
  Serious: Yes (Hospitalization)
  Sender: FDA-Public Use
  Company Number: APP201000196

PATIENT
  Age: 7 Day
  Sex: Female
  Weight: 2.78 kg

DRUGS (2)
  1. HEPARIN SODIUM INJECTION [Suspect]
     Indication: SYSTEMIC-PULMONARY ARTERY SHUNT
  2. HEPARIN SODIUM INJECTION [Suspect]
     Indication: THROMBOSIS PROPHYLAXIS

REACTIONS (3)
  - DRUG INEFFECTIVE [None]
  - GENERAL PHYSICAL HEALTH DETERIORATION [None]
  - SHUNT OCCLUSION [None]
